FAERS Safety Report 5244374-0 (Version None)
Quarter: 2007Q1

REPORT INFORMATION
  Report Type: 
  Country: None (occurrence: None)
  Receive Date: 20070222
  Receipt Date: 20070214
  Transmission Date: 20070707
  Serious: Yes (Hospitalization)
  Sender: FDA-Public Use
  Company Number: JP-PFIZER INC-2007012696

PATIENT
  Age: 51 Year
  Sex: Female

DRUGS (3)
  1. CARDENALIN [Suspect]
     Route: 048
  2. TRICYCLIC ANTIDEPRESSANTS [Concomitant]
  3. BENZODIAZEPINE DERIVATIVES [Concomitant]

REACTIONS (5)
  - BLOOD PRESSURE DECREASED [None]
  - COMA [None]
  - HYPERVENTILATION [None]
  - INTENTIONAL OVERDOSE [None]
  - SUICIDE ATTEMPT [None]
